FAERS Safety Report 20479759 (Version 2)
Quarter: 2022Q1

REPORT INFORMATION
  Report Type: Spontaneous
  Country: RO (occurrence: RO)
  Receive Date: 20220216
  Receipt Date: 20220323
  Transmission Date: 20220423
  Serious: Yes (Death, Other)
  Sender: FDA-Public Use
  Company Number: RO-PFIZER INC-202200210232

PATIENT
  Age: 38 Year
  Sex: Male

DRUGS (1)
  1. BESPONSA [Suspect]
     Active Substance: INOTUZUMAB OZOGAMICIN
     Dosage: UNK

REACTIONS (4)
  - Shock haemorrhagic [Fatal]
  - Acute respiratory failure [Unknown]
  - Upper gastrointestinal haemorrhage [Unknown]
  - Disseminated intravascular coagulation [Unknown]
